FAERS Safety Report 9681417 (Version 2)
Quarter: 2013Q4

REPORT INFORMATION
  Report Type: Spontaneous
  Country: US (occurrence: US)
  Receive Date: 20131111
  Receipt Date: 20131125
  Transmission Date: 20140711
  Serious: Yes (Hospitalization, Other)
  Sender: FDA-Public Use
  Company Number: US-GILEAD-2013-0087375

PATIENT
  Sex: Male

DRUGS (9)
  1. LETAIRIS [Suspect]
     Indication: PULMONARY HYPERTENSION
     Dosage: 10 MG, QD
     Route: 048
     Dates: start: 20121229
  2. LETAIRIS [Suspect]
     Indication: HEART DISEASE CONGENITAL
  3. TYVASO [Concomitant]
  4. ADCIRCA [Concomitant]
  5. PACERONE [Concomitant]
  6. LASIX                              /00032601/ [Concomitant]
  7. ALDACTONE                          /00006201/ [Concomitant]
  8. COUMADIN                           /00014802/ [Concomitant]
  9. PERCOCET                           /00446701/ [Concomitant]

REACTIONS (1)
  - Atrial septal defect repair [Unknown]
